FAERS Safety Report 25965061 (Version 2)
Quarter: 2025Q4

REPORT INFORMATION
  Report Type: Spontaneous
  Country: JP (occurrence: JP)
  Receive Date: 20251027
  Receipt Date: 20251117
  Transmission Date: 20260117
  Serious: Yes (Hospitalization, Other)
  Sender: ELI LILLY AND COMPANY
  Company Number: JP-ELI_LILLY_AND_COMPANY-JP202510021038

PATIENT
  Age: 66 Year
  Sex: Male
  Weight: 70 kg

DRUGS (3)
  1. CYRAMZA [Suspect]
     Active Substance: RAMUCIRUMAB
     Indication: Lung adenocarcinoma stage IV
     Dosage: 10 MG/KG
     Route: 041
     Dates: start: 20251001, end: 20251001
  2. DOCETAXEL [Suspect]
     Active Substance: DOCETAXEL
     Indication: Lung adenocarcinoma stage IV
     Dosage: 60 MG/M2
     Route: 041
     Dates: start: 20251001, end: 20251001
  3. PEGFILGRASTIM [Concomitant]
     Active Substance: PEGFILGRASTIM
     Indication: Lung adenocarcinoma stage IV

REACTIONS (2)
  - Pulmonary alveolar haemorrhage [Recovered/Resolved with Sequelae]
  - Pneumonitis [Unknown]

NARRATIVE: CASE EVENT DATE: 20251001
